FAERS Safety Report 25287071 (Version 2)
Quarter: 2025Q2

REPORT INFORMATION
  Report Type: Report from Study
  Country: US (occurrence: US)
  Receive Date: 20250509
  Receipt Date: 20250520
  Transmission Date: 20250717
  Serious: No
  Sender: ABBVIE
  Company Number: US-ABBVIE-6207255

PATIENT
  Age: 78 Year
  Sex: Male
  Weight: 89 kg

DRUGS (2)
  1. HUMIRA [Suspect]
     Active Substance: ADALIMUMAB
     Indication: Colitis
     Dosage: CITRATE FREE
     Route: 058
     Dates: start: 202501
  2. IRON [Concomitant]
     Active Substance: IRON
     Indication: Mineral supplementation
     Route: 048

REACTIONS (6)
  - Haemorrhoids [Not Recovered/Not Resolved]
  - Blood iron decreased [Not Recovered/Not Resolved]
  - Asthenia [Recovered/Resolved]
  - Red blood cell count decreased [Recovered/Resolved]
  - Peripheral swelling [Recovered/Resolved]
  - Loss of control of legs [Recovered/Resolved]

NARRATIVE: CASE EVENT DATE: 20250101
